FAERS Safety Report 8553887 (Version 8)
Quarter: 2013Q2

REPORT INFORMATION
  Report Type: Report from Study
  Country: FR (occurrence: FR)
  Receive Date: 20120509
  Receipt Date: 20130605
  Transmission Date: 20140414
  Serious: Yes (Hospitalization)
  Sender: FDA-Public Use
  Company Number: FR-ROCHE-1066458

PATIENT
  Age: 46 Year
  Sex: Female
  Weight: 70 kg

DRUGS (7)
  1. PEG-INTERFERON ALFA 2A [Suspect]
     Indication: HEPATITIS C
     Route: 065
     Dates: start: 20111026, end: 20120321
  2. RIBAVIRIN [Suspect]
     Indication: HEPATITIS C
     Route: 048
     Dates: start: 20111026, end: 20120322
  3. BLINDED ALISPORIVIR [Suspect]
     Indication: HEPATITIS C
     Route: 048
     Dates: start: 20111026, end: 20120322
  4. COTRIATEC [Concomitant]
     Route: 065
     Dates: start: 2010
  5. PARACETAMOL [Concomitant]
     Route: 065
     Dates: start: 20111025
  6. NEORECORMON [Concomitant]
     Route: 065
     Dates: start: 20111219
  7. TENORMIN [Concomitant]
     Route: 065
     Dates: start: 20111219

REACTIONS (1)
  - Cardiac failure [Unknown]
